FAERS Safety Report 5714290-6 (Version None)
Quarter: 2008Q2

REPORT INFORMATION
  Report Type: 
  Country: None (occurrence: None)
  Receive Date: 20080423
  Receipt Date: 20080423
  Transmission Date: 20081010
  Serious: Yes (Hospitalization)
  Sender: FDA-Public Use
  Company Number: None

PATIENT
  Age: 34 Year
  Sex: Female
  Weight: 120.2032 kg

DRUGS (2)
  1. HEPARIN [Suspect]
     Indication: CYSTITIS INTERSTITIAL
     Dosage: URETHRAL
     Route: 066
     Dates: start: 20071207, end: 20071207
  2. HEPARIN [Suspect]
     Indication: CYSTITIS INTERSTITIAL
     Dosage: URETHRAL
     Route: 066
     Dates: start: 20080118, end: 20080118

REACTIONS (7)
  - BLADDER PAIN [None]
  - CONDITION AGGRAVATED [None]
  - FEAR [None]
  - INFLUENZA [None]
  - MALAISE [None]
  - PAIN [None]
  - URETHRAL DISCHARGE [None]
